FAERS Safety Report 9757861 (Version 2)
Quarter: 2014Q1

REPORT INFORMATION
  Report Type: Report from Study
  Country: US (occurrence: US)
  Receive Date: 20131216
  Receipt Date: 20140120
  Transmission Date: 20141002
  Serious: No
  Sender: FDA-Public Use
  Company Number: US-JNJFOC-20131113785

PATIENT
  Age: 52 Year
  Sex: Female
  Weight: 58.97 kg

DRUGS (7)
  1. SIMPONI [Suspect]
     Indication: ANKYLOSING SPONDYLITIS
     Route: 058
     Dates: start: 2012
  2. LEVOTHYROXINE [Concomitant]
     Indication: THYROID DISORDER
     Dosage: FOR TWENTY YEARS
     Route: 048
  3. PROTONIX [Concomitant]
     Indication: GASTROOESOPHAGEAL REFLUX DISEASE
     Dosage: ABOUT FIVE YEARS
     Route: 048
  4. MAXIDE [Concomitant]
     Indication: MENIERE^S DISEASE
     Dosage: 75-50 MG TABLETS; 3 YEARS
     Route: 048
  5. METHOTREXATE [Concomitant]
     Indication: RHEUMATOID ARTHRITIS
     Dosage: 3 YEARS (15MG/TABLET/2.5MG/6 TABLETS??ONCE WEEKLY/ORAL)
     Route: 048
  6. FOLIC ACID [Concomitant]
     Indication: RHEUMATOID ARTHRITIS
     Dosage: 3 YEARS
     Route: 048
  7. ZYRTEC [Concomitant]
     Indication: URTICARIA
     Route: 065
     Dates: start: 1995

REACTIONS (3)
  - Drug dose omission [Not Recovered/Not Resolved]
  - Incorrect product storage [Recovered/Resolved]
  - Device malfunction [Not Recovered/Not Resolved]
